FAERS Safety Report 5849536-7 (Version None)
Quarter: 2008Q3

REPORT INFORMATION
  Report Type: 
  Country: None (occurrence: None)
  Receive Date: 20080815
  Receipt Date: 20080808
  Transmission Date: 20090109
  Serious: Yes (Death, Hospitalization)
  Sender: FDA-Public Use
  Company Number: 003603

PATIENT
  Age: 59 Year
  Sex: Female

DRUGS (6)
  1. BUSULFEX [Suspect]
     Indication: STEM CELL TRANSPLANT
     Dosage: 14 ML, DAILY DOSE INTRAVENOUS; 28 ML, DAILY DOSE; INTRAVENOUS; DAILY DOSE; INTRAVENOUS
     Route: 042
     Dates: start: 20070419, end: 20070419
  2. BUSULFEX [Suspect]
     Indication: STEM CELL TRANSPLANT
     Dosage: 14 ML, DAILY DOSE INTRAVENOUS; 28 ML, DAILY DOSE; INTRAVENOUS; DAILY DOSE; INTRAVENOUS
     Route: 042
     Dates: start: 20070420, end: 20070420
  3. BUSULFEX [Suspect]
     Indication: STEM CELL TRANSPLANT
     Dosage: 14 ML, DAILY DOSE INTRAVENOUS; 28 ML, DAILY DOSE; INTRAVENOUS; DAILY DOSE; INTRAVENOUS
     Route: 042
     Dates: start: 20070421, end: 20070421
  4. PHENYTOIN [Concomitant]
  5. MELPHALAN (MELPHALAN) [Concomitant]
  6. CYCLOSPORINE [Concomitant]

REACTIONS (11)
  - ACUTE GRAFT VERSUS HOST DISEASE [None]
  - ACUTE MYELOID LEUKAEMIA RECURRENT [None]
  - ANOREXIA [None]
  - CYTOMEGALOVIRUS VIRAEMIA [None]
  - DIARRHOEA [None]
  - HYPOCALCAEMIA [None]
  - MALAISE [None]
  - PLATELET COUNT DECREASED [None]
  - RENAL FAILURE ACUTE [None]
  - STOMATITIS [None]
  - VOMITING [None]
